FAERS Safety Report 12849248 (Version 1)
Quarter: 2016Q4

REPORT INFORMATION
  Report Type: Spontaneous
  Country: AR (occurrence: AR)
  Receive Date: 20161014
  Receipt Date: 20161014
  Transmission Date: 20170207
  Serious: Yes (Hospitalization)
  Sender: FDA-Public Use
  Company Number: AR-PFIZER INC-2016477822

PATIENT
  Age: 67 Year
  Sex: Male

DRUGS (1)
  1. SUTENT [Suspect]
     Active Substance: SUNITINIB MALATE
     Indication: METASTATIC RENAL CELL CARCINOMA
     Dosage: UNK
     Dates: start: 20160831

REACTIONS (7)
  - Dry mouth [Recovering/Resolving]
  - Dehydration [Recovered/Resolved]
  - Skin discolouration [Recovering/Resolving]
  - Anaemia [Recovered/Resolved]
  - Pyrexia [Recovered/Resolved]
  - Malaise [Recovering/Resolving]
  - Aptyalism [Recovering/Resolving]

NARRATIVE: CASE EVENT DATE: 20160902
